FAERS Safety Report 20576857 (Version 3)
Quarter: 2024Q1

REPORT INFORMATION
  Report Type: Spontaneous
  Country: US (occurrence: US)
  Receive Date: 20220310
  Receipt Date: 20240109
  Transmission Date: 20240410
  Serious: Yes (Other)
  Sender: FDA-Public Use
  Company Number: US-GILEAD-2022-0572810

PATIENT
  Sex: Male
  Weight: 68.027 kg

DRUGS (24)
  1. VIREAD [Suspect]
     Active Substance: TENOFOVIR DISOPROXIL FUMARATE
     Indication: HIV infection
     Dosage: UNK
     Route: 048
     Dates: start: 2001
  2. VIREAD [Suspect]
     Active Substance: TENOFOVIR DISOPROXIL FUMARATE
     Dosage: UNK
     Route: 048
     Dates: start: 200309, end: 200401
  3. TRUVADA [Suspect]
     Active Substance: EMTRICITABINE\TENOFOVIR DISOPROXIL FUMARATE
     Indication: HIV infection
     Dosage: UNK
     Route: 048
     Dates: start: 2001
  4. TRUVADA [Suspect]
     Active Substance: EMTRICITABINE\TENOFOVIR DISOPROXIL FUMARATE
     Dosage: UNK
     Route: 048
     Dates: start: 2004, end: 2016
  5. TRUVADA [Suspect]
     Active Substance: EMTRICITABINE\TENOFOVIR DISOPROXIL FUMARATE
     Dosage: UNK
     Route: 048
     Dates: start: 200402, end: 201305
  6. GENVOYA [Concomitant]
     Active Substance: COBICISTAT\ELVITEGRAVIR\EMTRICITABINE\TENOFOVIR ALAFENAMIDE FUMARATE
     Indication: HIV infection
     Dosage: UNK
     Dates: start: 2017
  7. EMTRIVA [Concomitant]
     Active Substance: EMTRICITABINE
     Dosage: UNK
  8. RECLAST [Concomitant]
     Active Substance: ZOLEDRONIC ACID
     Dosage: UNK
     Dates: start: 2017
  9. VITAMIN D NOS [Concomitant]
     Active Substance: VITAMIN D NOS
     Dosage: UNK
     Dates: start: 2017
  10. CALCIUM [Concomitant]
     Active Substance: CALCIUM
     Dosage: UNK
     Dates: start: 2017
  11. CRIXIVAN [Concomitant]
     Active Substance: INDINAVIR SULFATE
     Dosage: UNK
  12. EPIVIR [Concomitant]
     Active Substance: LAMIVUDINE
     Dosage: UNK
  13. INTELENCE [Concomitant]
     Active Substance: ETRAVIRINE
     Dosage: UNK
  14. KALETRA [Concomitant]
     Active Substance: LOPINAVIR\RITONAVIR
     Dosage: UNK
  15. NORVIR [Concomitant]
     Active Substance: RITONAVIR
     Dosage: UNK
  16. ZERIT [Concomitant]
     Active Substance: STAVUDINE
     Dosage: UNK
  17. TESTOSTERONE [Concomitant]
     Active Substance: TESTOSTERONE
     Indication: Muscle relaxant therapy
     Dosage: UNK
     Dates: start: 1996
  18. LOSARTAN [Concomitant]
     Active Substance: LOSARTAN
     Indication: Hypertension
     Dosage: UNK
     Dates: start: 2008
  19. ALPRAZOLAM [Concomitant]
     Active Substance: ALPRAZOLAM
     Indication: Sleep disorder
     Dosage: UNK
     Dates: start: 2000
  20. TEMAZEPAM [Concomitant]
     Active Substance: TEMAZEPAM
     Indication: Sleep disorder
     Dosage: UNK
     Dates: start: 2000
  21. MELOXICAM [Concomitant]
     Active Substance: MELOXICAM
     Indication: Sleep disorder
     Dosage: UNK
     Dates: start: 2000
  22. ISENTRESS [Concomitant]
     Active Substance: RALTEGRAVIR POTASSIUM
  23. RETROVIR [Concomitant]
     Active Substance: ZIDOVUDINE
  24. VIDEX [Concomitant]
     Active Substance: DIDANOSINE

REACTIONS (12)
  - Renal injury [Unknown]
  - Chronic kidney disease [Not Recovered/Not Resolved]
  - Osteoporosis [Not Recovered/Not Resolved]
  - Multiple fractures [Unknown]
  - Foot fracture [Unknown]
  - Bone demineralisation [Unknown]
  - Emotional distress [Not Recovered/Not Resolved]
  - Anhedonia [Not Recovered/Not Resolved]
  - Anxiety [Not Recovered/Not Resolved]
  - Pain [Not Recovered/Not Resolved]
  - Blood creatinine increased [Not Recovered/Not Resolved]
  - Loss of personal independence in daily activities [Unknown]

NARRATIVE: CASE EVENT DATE: 20050101
